FAERS Safety Report 4426808-4 (Version None)
Quarter: 2004Q3

REPORT INFORMATION
  Report Type: 
  Country: None (occurrence: None)
  Receive Date: 20040816
  Receipt Date: 20040812
  Transmission Date: 20050211
  Serious: Yes (Other)
  Sender: FDA-Public Use
  Company Number: US-GLAXOSMITHKLINE-A0521972A

PATIENT
  Age: 23 Year
  Sex: Female

DRUGS (5)
  1. RELAFEN [Suspect]
     Dosage: 1000MG PER DAY
     Route: 048
  2. WELLBUTRIN XL [Concomitant]
  3. AMITRIPTYLINE HCL [Concomitant]
  4. VERELAN [Concomitant]
  5. CLONAZEPAM [Concomitant]

REACTIONS (1)
  - PORPHYRIA [None]
